FAERS Safety Report 20696802 (Version 2)
Quarter: 2022Q2

REPORT INFORMATION
  Report Type: Spontaneous
  Country: EC (occurrence: EC)
  Receive Date: 20220411
  Receipt Date: 20220613
  Transmission Date: 20220720
  Serious: Yes (Other)
  Sender: FDA-Public Use
  Company Number: EC-COLLEGIUM PHARMACEUTICAL, INC.-2022CGM00215

PATIENT
  Sex: Male

DRUGS (2)
  1. TAPENTADOL [Suspect]
     Active Substance: TAPENTADOL
     Indication: Arthralgia
     Dosage: 50 MG
     Dates: start: 202203, end: 202203
  2. TAPENTADOL [Suspect]
     Active Substance: TAPENTADOL
     Dosage: UNK
     Dates: start: 202203, end: 202203

REACTIONS (8)
  - Loss of consciousness [Unknown]
  - Vomiting [Unknown]
  - Somnolence [Unknown]
  - Hypotension [Unknown]
  - Chills [Unknown]
  - Hyperhidrosis [Unknown]
  - Fatigue [Unknown]
  - Therapy cessation [Unknown]

NARRATIVE: CASE EVENT DATE: 20220301
